FAERS Safety Report 7774195-6 (Version None)
Quarter: 2011Q3

REPORT INFORMATION
  Report Type: 
  Country: None (occurrence: None)
  Receive Date: 20110923
  Receipt Date: 20110912
  Transmission Date: 20111222
  Serious: Yes (Other)
  Sender: FDA-Public Use
  Company Number: ES-SANOFI-AVENTIS-2010SA071552

PATIENT
  Age: 69 Year
  Sex: Male
  Weight: 75 kg

DRUGS (5)
  1. EPROSARTAN [Concomitant]
     Route: 065
  2. MULTAQ [Suspect]
     Indication: ATRIAL FIBRILLATION
     Route: 048
     Dates: start: 20101008, end: 20101109
  3. DOXAZOSIN MESYLATE [Concomitant]
     Route: 065
  4. SINTROM [Interacting]
     Indication: ATRIAL FIBRILLATION
     Route: 048
     Dates: start: 20101008
  5. OMEPRAZOLE [Concomitant]
     Route: 065

REACTIONS (4)
  - DRUG INTERACTION [None]
  - VOMITING [None]
  - DIARRHOEA [None]
  - INTERNATIONAL NORMALISED RATIO INCREASED [None]
